FAERS Safety Report 6297517-4 (Version None)
Quarter: 2009Q3

REPORT INFORMATION
  Report Type: 
  Country: None (occurrence: None)
  Receive Date: 20090805
  Receipt Date: 20090728
  Transmission Date: 20100115
  Serious: Yes (Hospitalization, Other)
  Sender: FDA-Public Use
  Company Number: FR-ASTRAZENECA-1999AP01256

PATIENT
  Age: 24711 Day
  Sex: Female
  Weight: 70 kg

DRUGS (2)
  1. NOLVADEX [Suspect]
     Indication: BREAST CANCER
     Route: 048
     Dates: start: 19980312, end: 19990219
  2. TRANDOLAPRIL [Concomitant]
     Indication: HYPERTENSION
     Route: 048

REACTIONS (2)
  - RETINAL VEIN OCCLUSION [None]
  - VISUAL IMPAIRMENT [None]
